FAERS Safety Report 4668188-5 (Version None)
Quarter: 2005Q2

REPORT INFORMATION
  Report Type: 
  Country: None (occurrence: None)
  Receive Date: 20050523
  Receipt Date: 20050125
  Transmission Date: 20051028
  Serious: Yes (Other)
  Sender: FDA-Public Use
  Company Number: PHEH2005US01293

PATIENT
  Age: 49 Year
  Sex: Female

DRUGS (9)
  1. ZOMETA [Suspect]
     Indication: METASTASES TO BONE
     Dosage: 4 MG, QMO
     Dates: start: 20020601, end: 20040901
  2. TRASTUZUMAB [Concomitant]
  3. VINORELBINE TARTRATE [Concomitant]
  4. DEXAMETHASONE [Concomitant]
     Indication: PREMEDICATION
     Dosage: 4 MG, UNK
     Route: 042
  5. KYTRIL [Concomitant]
     Indication: PREMEDICATION
  6. ARANESP [Concomitant]
  7. HYDROMORPHONE HCL [Concomitant]
  8. CELEXA [Concomitant]
  9. LORAZEPAM [Concomitant]

REACTIONS (7)
  - BONE DEBRIDEMENT [None]
  - BONE DISORDER [None]
  - INFLAMMATION [None]
  - METASTASES TO CENTRAL NERVOUS SYSTEM [None]
  - OSTEOMYELITIS [None]
  - OSTEONECROSIS [None]
  - OVERGROWTH BACTERIAL [None]
